FAERS Safety Report 4364325-0 (Version None)
Quarter: 2004Q2

REPORT INFORMATION
  Report Type: 
  Country: None (occurrence: None)
  Receive Date: 20040525
  Receipt Date: 20030807
  Transmission Date: 20050107
  Serious: Yes (Other)
  Sender: FDA-Public Use
  Company Number: US-BRISTOL-MYERS SQUIBB COMPANY-12348637

PATIENT
  Age: 43 Year
  Sex: Male

DRUGS (1)
  1. CYTOXAN [Suspect]
     Route: 042
     Dates: start: 20030509, end: 20030509

REACTIONS (1)
  - HAEMOGLOBIN DECREASED [None]
